FAERS Safety Report 9351229 (Version 1)
Quarter: 2013Q2

REPORT INFORMATION
  Report Type: Spontaneous
  Country: US (occurrence: US)
  Receive Date: 20130617
  Receipt Date: 20130617
  Transmission Date: 20140414
  Serious: No
  Sender: FDA-Public Use
  Company Number: US-B.I. PHARMACEUTICALS,INC./RIDGEFIELD-2013-BI-16670BP

PATIENT
  Age: 75 Year
  Sex: Male

DRUGS (4)
  1. ZANTAC (RANITIDINE HYDROCHLORIDE) [Suspect]
     Indication: DYSPEPSIA
     Dosage: 150 MG
     Route: 048
     Dates: start: 20130527
  2. LANTUS INSULIN [Concomitant]
     Indication: DIABETES MELLITUS
     Dosage: FORMULATION:SUBCUTANEOUS;
     Route: 058
  3. CRESTOR [Concomitant]
     Indication: BLOOD CHOLESTEROL INCREASED
     Dosage: 10 MG
     Route: 048
  4. LOSARTAN [Concomitant]
     Dosage: 50 MG
     Route: 048

REACTIONS (1)
  - Dyspepsia [Not Recovered/Not Resolved]
